FAERS Safety Report 6728598-9 (Version None)
Quarter: 2010Q2

REPORT INFORMATION
  Report Type: 
  Country: None (occurrence: None)
  Receive Date: 20100517
  Receipt Date: 20100512
  Transmission Date: 20101027
  Serious: Yes (Hospitalization)
  Sender: FDA-Public Use
  Company Number: FR-PFIZER INC-2010059509

PATIENT
  Age: 86 Year
  Sex: Female

DRUGS (5)
  1. CELEBREX [Suspect]
     Dosage: 100 MG, 1X/DAY
     Route: 048
     Dates: start: 20100420, end: 20100426
  2. TOPALGIC [Suspect]
     Dosage: 100 MG, 2X/DAY
     Route: 048
     Dates: start: 20100420, end: 20100426
  3. IRBESARTAN [Concomitant]
     Dosage: 300 MG, 2X/DAY
     Route: 048
  4. NEXIUM [Concomitant]
     Dosage: 20 MG, 1X/DAY
     Route: 048
  5. LAMALINE [Concomitant]
     Dosage: 2 DF, 4X/DAY
     Route: 048

REACTIONS (3)
  - AGITATION [None]
  - CONFUSIONAL STATE [None]
  - HALLUCINATION [None]
